FAERS Safety Report 18858783 (Version 1)
Quarter: 2021Q1

REPORT INFORMATION
  Report Type: Spontaneous
  Country: US (occurrence: US)
  Receive Date: 20210205
  Receipt Date: 20210205
  Transmission Date: 20210420
  Serious: Yes (Hospitalization)
  Sender: FDA-Public Use
  Company Number: None

PATIENT
  Sex: Male

DRUGS (1)
  1. INLYTA [Suspect]
     Active Substance: AXITINIB
     Indication: RENAL CANCER
     Dosage: ?          OTHER FREQUENCY:BID?Q12HR;?
     Route: 048
     Dates: start: 20210113

REACTIONS (5)
  - Amnesia [None]
  - Therapy interrupted [None]
  - Diarrhoea [None]
  - Confusional state [None]
  - Oropharyngeal pain [None]
